FAERS Safety Report 17665108 (Version 14)
Quarter: 2021Q4

REPORT INFORMATION
  Report Type: Spontaneous
  Country: US (occurrence: US)
  Receive Date: 20200414
  Receipt Date: 20211110
  Transmission Date: 20220303
  Serious: Yes (Other)
  Sender: FDA-Public Use
  Company Number: US-PFIZER INC-2020067483

PATIENT
  Age: 65 Year
  Sex: Female
  Weight: 71.21 kg

DRUGS (3)
  1. PREMARIN [Suspect]
     Active Substance: ESTROGENS, CONJUGATED
     Indication: Hormone replacement therapy
     Dosage: 0.3125 MG, DAILY (0.625MG, CUTS IN HALF)
     Route: 048
  2. PREMARIN [Suspect]
     Active Substance: ESTROGENS, CONJUGATED
     Indication: Menopausal symptoms
     Dosage: 0.625 MG, DAILY (TAKE 1 TABLET (S) EVERY DAY BY ORAL ROUTE FOR 90 DAYS)
     Route: 048
  3. PREMARIN [Suspect]
     Active Substance: ESTROGENS, CONJUGATED
     Indication: Hormone replacement therapy

REACTIONS (7)
  - Hypergammaglobulinaemia benign monoclonal [Not Recovered/Not Resolved]
  - Malaise [Unknown]
  - Gait disturbance [Unknown]
  - Therapeutic response unexpected [Unknown]
  - Immune system disorder [Unknown]
  - Product prescribing error [Unknown]
  - Bone marrow disorder [Unknown]

NARRATIVE: CASE EVENT DATE: 20150101
